FAERS Safety Report 10468831 (Version 4)
Quarter: 2015Q1

REPORT INFORMATION
  Report Type: Spontaneous
  Country: CH (occurrence: CH)
  Receive Date: 20140923
  Receipt Date: 20150327
  Transmission Date: 20150720
  Serious: Yes (Hospitalization, Other)
  Sender: FDA-Public Use
  Company Number: CH-ROCHE-1463358

PATIENT
  Age: 54 Year
  Sex: Female

DRUGS (11)
  1. ARIMIDEX [Concomitant]
     Active Substance: ANASTROZOLE
     Indication: BREAST CANCER
     Route: 065
     Dates: start: 201304
  2. EXEMESTANE. [Concomitant]
     Active Substance: EXEMESTANE
     Indication: BREAST CANCER
     Route: 065
     Dates: start: 20130225, end: 20130311
  3. TAXOL [Suspect]
     Active Substance: PACLITAXEL
     Route: 065
     Dates: start: 2014
  4. TAXOL [Suspect]
     Active Substance: PACLITAXEL
     Indication: BREAST CANCER
     Route: 065
     Dates: start: 201207, end: 201212
  5. LAPATINIB [Suspect]
     Active Substance: LAPATINIB
     Indication: BREAST CANCER
     Route: 065
  6. HERCEPTIN [Suspect]
     Active Substance: TRASTUZUMAB
     Route: 065
     Dates: start: 201301, end: 201312
  7. HERCEPTIN [Suspect]
     Active Substance: TRASTUZUMAB
     Indication: BREAST CANCER
     Route: 065
     Dates: start: 201207, end: 201212
  8. KADCYLA [Suspect]
     Active Substance: ADO-TRASTUZUMAB EMTANSINE
     Indication: BREAST CANCER
     Dosage: FIRST CYCLE 1 WAS ON /JAN/2014?LAST CYCLE 4 WAS ON /APR/2014
     Route: 065
     Dates: start: 201401, end: 201404
  9. TYVERB [Suspect]
     Active Substance: LAPATINIB
     Indication: BREAST CANCER
     Route: 065
     Dates: start: 20140730, end: 20140903
  10. HERCEPTIN [Suspect]
     Active Substance: TRASTUZUMAB
     Route: 065
     Dates: start: 2014
  11. HERCEPTIN [Suspect]
     Active Substance: TRASTUZUMAB
     Route: 065
     Dates: start: 20140730, end: 20140903

REACTIONS (11)
  - Urosepsis [Unknown]
  - Hepatic cirrhosis [Not Recovered/Not Resolved]
  - Neuropathy peripheral [Unknown]
  - Pyrexia [Unknown]
  - Decreased appetite [Unknown]
  - Oesophageal varices haemorrhage [Unknown]
  - Bone marrow failure [Not Recovered/Not Resolved]
  - Disease progression [Unknown]
  - Thrombocytopenia [Unknown]
  - Night sweats [Unknown]
  - Off label use [Unknown]

NARRATIVE: CASE EVENT DATE: 201312
